FAERS Safety Report 7948419-6 (Version None)
Quarter: 2011Q4

REPORT INFORMATION
  Report Type: 
  Country: None (occurrence: None)
  Receive Date: 20111123
  Receipt Date: 20111114
  Transmission Date: 20120403
  Serious: Yes (Disabling, Other)
  Sender: FDA-Public Use
  Company Number: 2011P1011221

PATIENT
  Age: 50 Year
  Sex: Male

DRUGS (1)
  1. PREDNISONE [Suspect]
     Indication: GAIT DISTURBANCE
     Dosage: 60 MG;QD;PO
     Route: 048

REACTIONS (9)
  - NEUROLOGICAL DECOMPENSATION [None]
  - NEUROPATHY PERIPHERAL [None]
  - ABASIA [None]
  - DIPLOPIA [None]
  - DYSARTHRIA [None]
  - ATAXIA [None]
  - SENSORY LOSS [None]
  - DYSPHAGIA [None]
  - AREFLEXIA [None]
